FAERS Safety Report 18363799 (Version 1)
Quarter: 2020Q4

REPORT INFORMATION
  Report Type: Spontaneous
  Country: HU (occurrence: HU)
  Receive Date: 20201009
  Receipt Date: 20201009
  Transmission Date: 20210114
  Serious: Yes (Other)
  Sender: FDA-Public Use
  Company Number: HU-JNJFOC-20201009900

PATIENT
  Age: 38 Year
  Sex: Male

DRUGS (1)
  1. ZAVESCA [Suspect]
     Active Substance: MIGLUSTAT
     Indication: NIEMANN-PICK DISEASE
     Route: 048
     Dates: start: 2017

REACTIONS (7)
  - Nervousness [Unknown]
  - Chorea [Unknown]
  - Pneumonia [Unknown]
  - General physical health deterioration [Unknown]
  - Aggression [Unknown]
  - Dysphagia [Unknown]
  - Decreased appetite [Unknown]
